FAERS Safety Report 10040702 (Version 1)
Quarter: 2014Q1

REPORT INFORMATION
  Report Type: Spontaneous
  Country: US (occurrence: US)
  Receive Date: 20140327
  Receipt Date: 20140327
  Transmission Date: 20141002
  Serious: Yes (Other)
  Sender: FDA-Public Use
  Company Number: US-AMGEN-USASP2014021747

PATIENT
  Age: 61 Year
  Sex: Female
  Weight: 90.25 kg

DRUGS (6)
  1. ENBREL [Suspect]
     Indication: RHEUMATOID ARTHRITIS
     Dosage: 50 MG, QWK
     Route: 058
     Dates: start: 2011, end: 201401
  2. ARAVA [Concomitant]
     Dosage: UNK
  3. CALCIUM CARBONATE [Concomitant]
     Dosage: UNK
  4. FOLIC ACID [Concomitant]
     Dosage: UNK
  5. MEDROL                             /00049603/ [Concomitant]
     Dosage: UNK
  6. VITAMIN D                          /00107901/ [Concomitant]
     Dosage: UNK

REACTIONS (8)
  - Surgery [Unknown]
  - Therapeutic response decreased [Unknown]
  - Herpes zoster [Unknown]
  - Injection site swelling [Unknown]
  - Injection site erythema [Unknown]
  - Injection site induration [Unknown]
  - Injection site pruritus [Unknown]
  - Injection site reaction [Unknown]
